FAERS Safety Report 19274013 (Version 1)
Quarter: 2021Q2

REPORT INFORMATION
  Report Type: Spontaneous
  Country: US (occurrence: US)
  Receive Date: 20210519
  Receipt Date: 20210519
  Transmission Date: 20210717
  Serious: Yes (Other)
  Sender: FDA-Public Use
  Company Number: None

PATIENT
  Age: 72 Year
  Sex: Male

DRUGS (1)
  1. ONUREG [Suspect]
     Active Substance: AZACITIDINE
     Indication: MYELODYSPLASTIC SYNDROME
     Route: 048
     Dates: start: 20210403, end: 20210403

REACTIONS (5)
  - Abdominal pain upper [None]
  - Hypertension [None]
  - Chest pain [None]
  - Diarrhoea [None]
  - Vomiting [None]

NARRATIVE: CASE EVENT DATE: 20210403
